FAERS Safety Report 6379310-7 (Version None)
Quarter: 2009Q3

REPORT INFORMATION
  Report Type: 
  Country: None (occurrence: None)
  Receive Date: 20090923
  Receipt Date: 20090923
  Transmission Date: 20100115
  Serious: No
  Sender: FDA-Public Use
  Company Number: None

PATIENT
  Age: 74 Year
  Sex: Female
  Weight: 59.4 kg

DRUGS (8)
  1. MORPHINE [Suspect]
     Indication: PAIN
     Dosage: 0/1/10 PCA PRN
     Dates: start: 20090608, end: 20090609
  2. PERCOCET [Suspect]
     Indication: PAIN
     Dosage: 1 TABLET Q 4 PRN
     Dates: start: 20090609, end: 20090610
  3. FUROSEMIDE [Concomitant]
  4. KETOROLAC TROMETHAMINE [Concomitant]
  5. LANSOPRAZOLE [Concomitant]
  6. MIRTAZAPINE [Concomitant]
  7. PILOCARPINE HYDROCHLORIDE [Concomitant]
  8. SIMVASTATIN [Concomitant]

REACTIONS (2)
  - MENTAL STATUS CHANGES [None]
  - OXYGEN SATURATION DECREASED [None]
